APPROVED DRUG PRODUCT: EPIVIR-HBV
Active Ingredient: LAMIVUDINE
Strength: 100MG
Dosage Form/Route: TABLET;ORAL
Application: N021003 | Product #001
Applicant: GLAXOSMITHKLINE
Approved: Dec 8, 1998 | RLD: Yes | RS: No | Type: DISCN